FAERS Safety Report 6074384-5 (Version None)
Quarter: 2009Q1

REPORT INFORMATION
  Report Type: 
  Country: None (occurrence: None)
  Receive Date: 20090206
  Receipt Date: 20090126
  Transmission Date: 20090719
  Serious: Yes (Hospitalization, Other)
  Sender: FDA-Public Use
  Company Number: CLOF-1000393

PATIENT
  Age: 74 Year
  Sex: Male

DRUGS (2)
  1. EVOLTRA (CLOFARABINE) [Suspect]
     Indication: ACUTE MYELOID LEUKAEMIA
     Dates: start: 20081117, end: 20081121
  2. EVOLTRA (CLOFARABINE) [Suspect]
     Indication: ACUTE MYELOID LEUKAEMIA
     Dates: start: 20090119, end: 20090119

REACTIONS (7)
  - ANAEMIA [None]
  - CHEST PAIN [None]
  - CHILLS [None]
  - NEUTROPENIA [None]
  - PLATELET COUNT DECREASED [None]
  - PYREXIA [None]
  - RASH [None]
